FAERS Safety Report 13548939 (Version 1)
Quarter: 2017Q2

REPORT INFORMATION
  Report Type: Spontaneous
  Country: US (occurrence: US)
  Receive Date: 20170516
  Receipt Date: 20170516
  Transmission Date: 20170830
  Serious: No
  Sender: FDA-Public Use
  Company Number: US-PFIZER INC-2017209424

PATIENT
  Sex: Female

DRUGS (1)
  1. XELJANZ [Suspect]
     Active Substance: TOFACITINIB CITRATE
     Dosage: 5 MG, 2X/DAY

REACTIONS (20)
  - Arthralgia [Unknown]
  - Headache [Unknown]
  - Muscle rigidity [Recovered/Resolved]
  - Mouth ulceration [Unknown]
  - Exercise tolerance decreased [Unknown]
  - Neck pain [Unknown]
  - Fibromyalgia [Unknown]
  - Dry mouth [Unknown]
  - Alopecia [Unknown]
  - Sleep disorder [Unknown]
  - Thirst [Unknown]
  - Temperature intolerance [Unknown]
  - Butterfly rash [Unknown]
  - Fatigue [Unknown]
  - Tenderness [Unknown]
  - Arthropathy [Recovering/Resolving]
  - Peripheral swelling [Unknown]
  - Anxiety disorder [Unknown]
  - Poor quality sleep [Unknown]
  - Synovitis [Unknown]
